FAERS Safety Report 13066685 (Version 1)
Quarter: 2016Q4

REPORT INFORMATION
  Report Type: Report from Study
  Country: GB (occurrence: GB)
  Receive Date: 20161227
  Receipt Date: 20161227
  Transmission Date: 20170207
  Serious: Yes (Hospitalization)
  Sender: FDA-Public Use
  Company Number: GB-JNJFOC-20161210120

PATIENT
  Age: 52 Year
  Sex: Female
  Weight: 101.9 kg

DRUGS (30)
  1. STELARA [Suspect]
     Active Substance: USTEKINUMAB
     Indication: PSORIASIS
     Route: 058
     Dates: start: 2016
  2. METFORMIN [Concomitant]
     Active Substance: METFORMIN HYDROCHLORIDE
     Route: 065
     Dates: start: 20120110
  3. DOMPERIDONE [Concomitant]
     Active Substance: DOMPERIDONE
     Route: 065
     Dates: start: 20110830
  4. HYDROMOL [Concomitant]
     Route: 065
     Dates: start: 20160509
  5. BECLOMETHASONE [Concomitant]
     Active Substance: BECLOMETHASONE
     Route: 065
     Dates: start: 20160930
  6. AMITRIPTYLINE [Concomitant]
     Active Substance: AMITRIPTYLINE
     Route: 065
  7. PREDNISONE. [Concomitant]
     Active Substance: PREDNISONE
     Route: 065
     Dates: start: 20100218
  8. GABAPENTIN. [Concomitant]
     Active Substance: GABAPENTIN
     Route: 065
     Dates: start: 20100312
  9. NEFOPAM [Concomitant]
     Active Substance: NEFOPAM
     Route: 065
     Dates: start: 20150208
  10. CALCIPOTRIOL [Concomitant]
     Active Substance: CALCIPOTRIENE
     Route: 065
     Dates: start: 20160930
  11. STELARA [Suspect]
     Active Substance: USTEKINUMAB
     Indication: PSORIASIS
     Route: 058
     Dates: start: 20100817, end: 2016
  12. GLICLAZIDE [Concomitant]
     Active Substance: GLICLAZIDE
     Route: 065
     Dates: start: 20120110
  13. MORPHINE [Concomitant]
     Active Substance: MORPHINE
     Route: 065
     Dates: start: 20070717
  14. METHOTREXATE. [Concomitant]
     Active Substance: METHOTREXATE
     Route: 065
     Dates: start: 20070704, end: 20160326
  15. HUMULIN NOS [Concomitant]
     Active Substance: INSULIN HUMAN
     Route: 065
     Dates: start: 20140115
  16. FELODIPINE. [Concomitant]
     Active Substance: FELODIPINE
     Route: 065
     Dates: start: 20061201
  17. FELODIPINE. [Concomitant]
     Active Substance: FELODIPINE
     Route: 065
  18. MORPHINE [Concomitant]
     Active Substance: MORPHINE
     Route: 065
  19. HYDROCORTISONE. [Concomitant]
     Active Substance: HYDROCORTISONE
     Route: 065
     Dates: start: 20160509
  20. BETNOVATE [Concomitant]
     Active Substance: BETAMETHASONE
     Route: 065
     Dates: start: 20160509
  21. LOSARTAN. [Concomitant]
     Active Substance: LOSARTAN
     Route: 065
     Dates: start: 20061201
  22. METFORMIN [Concomitant]
     Active Substance: METFORMIN HYDROCHLORIDE
     Route: 065
  23. AMITRIPTYLINE [Concomitant]
     Active Substance: AMITRIPTYLINE
     Route: 065
     Dates: start: 20061201
  24. FUROSEMIDE. [Concomitant]
     Active Substance: FUROSEMIDE
     Route: 065
  25. FUROSEMIDE. [Concomitant]
     Active Substance: FUROSEMIDE
     Route: 065
     Dates: start: 20091030
  26. LANSOPRAZOLE. [Concomitant]
     Active Substance: LANSOPRAZOLE
     Route: 065
  27. GLICLAZIDE [Concomitant]
     Active Substance: GLICLAZIDE
     Route: 065
  28. FOLIC ACID. [Concomitant]
     Active Substance: FOLIC ACID
     Route: 065
  29. FOLIC ACID. [Concomitant]
     Active Substance: FOLIC ACID
     Route: 065
     Dates: start: 20080910
  30. LANSOPRAZOLE. [Concomitant]
     Active Substance: LANSOPRAZOLE
     Route: 065
     Dates: start: 20061201

REACTIONS (3)
  - Intervertebral disc operation [Recovered/Resolved]
  - Surgery [Recovered/Resolved]
  - Sensory disturbance [Unknown]

NARRATIVE: CASE EVENT DATE: 20160912
